FAERS Safety Report 13721669 (Version 1)
Quarter: 2017Q3

REPORT INFORMATION
  Report Type: Spontaneous
  Country: US (occurrence: US)
  Receive Date: 20170706
  Receipt Date: 20170706
  Transmission Date: 20171127
  Serious: Yes (Other)
  Sender: FDA-Public Use
  Company Number: None

PATIENT
  Age: 61 Year
  Sex: Female
  Weight: 63.5 kg

DRUGS (1)
  1. PAROXETINE 20 MG ZYDUS PHARM [Suspect]
     Active Substance: PAROXETINE
     Indication: ANXIETY
     Dosage: 1 TABLET ONCE A DAY PO
     Route: 048
     Dates: start: 20170520, end: 20170526

REACTIONS (5)
  - Migraine [None]
  - Somnolence [None]
  - Product substitution issue [None]
  - Drug ineffective [None]
  - Headache [None]

NARRATIVE: CASE EVENT DATE: 20170520
